FAERS Safety Report 9537148 (Version 1)
Quarter: 2013Q3

REPORT INFORMATION
  Report Type: Spontaneous
  Country: US (occurrence: None)
  Receive Date: 20130918
  Receipt Date: 20130918
  Transmission Date: 20140515
  Serious: Yes (Disabling)
  Sender: FDA-Public Use
  Company Number: None

PATIENT
  Age: 61 Year
  Sex: Male
  Weight: 92.99 kg

DRUGS (5)
  1. DUREZOL [Suspect]
     Indication: UVEITIS
     Dosage: 4 TIMES A DAY DROPS IN THE EYE
     Route: 047
     Dates: start: 20121001, end: 20130228
  2. PRED FORTE [Concomitant]
  3. ONE A DAY VITAMIN [Concomitant]
  4. BABY ASPIRIN [Concomitant]
  5. CO-Q10 [Concomitant]

REACTIONS (3)
  - Visual impairment [None]
  - Vision blurred [None]
  - Lens disorder [None]
